FAERS Safety Report 20652448 (Version 2)
Quarter: 2022Q2

REPORT INFORMATION
  Report Type: Spontaneous
  Country: US (occurrence: US)
  Receive Date: 20220330
  Receipt Date: 20220405
  Transmission Date: 20220721
  Serious: Yes (Other)
  Sender: FDA-Public Use
  Company Number: US-MLMSERVICE-20220318-3444123-1

PATIENT
  Age: 19 Year
  Sex: Female

DRUGS (24)
  1. ALPRAZOLAM [Suspect]
     Active Substance: ALPRAZOLAM
     Indication: Anxiety
     Dosage: UNK
     Route: 065
  2. AZITHROMYCIN [Suspect]
     Active Substance: AZITHROMYCIN
     Indication: Tick-borne fever
     Dosage: 500 MILLIGRAM, ONCE A DAY
     Route: 065
  3. CETIRIZINE [Suspect]
     Active Substance: CETIRIZINE HYDROCHLORIDE
     Indication: Mast cell activation syndrome
     Dosage: UNK
     Route: 065
  4. CELECOXIB [Suspect]
     Active Substance: CELECOXIB
     Indication: Obsessive-compulsive disorder
     Dosage: 100 MILLIGRAM, ONCE A DAY (ESCALATING TO TWICE DAILY)
     Route: 065
  5. CLARITHROMYCIN [Suspect]
     Active Substance: CLARITHROMYCIN
     Indication: Tick-borne fever
     Dosage: UNK
     Route: 065
  6. DIPHENHYDRAMINE [Suspect]
     Active Substance: DIPHENHYDRAMINE
     Indication: Mast cell activation syndrome
     Dosage: UNK
     Route: 065
  7. FAMOTIDINE [Suspect]
     Active Substance: FAMOTIDINE
     Indication: Mast cell activation syndrome
     Dosage: UNK
     Route: 065
  8. FEXOFENADINE [Suspect]
     Active Substance: FEXOFENADINE HYDROCHLORIDE
     Indication: Mast cell activation syndrome
     Dosage: UNK
     Route: 065
  9. HYDROXYZINE [Suspect]
     Active Substance: HYDROXYZINE HYDROCHLORIDE
     Indication: Obsessive-compulsive disorder
     Dosage: UNK
     Route: 065
  10. IMATINIB [Suspect]
     Active Substance: IMATINIB
     Indication: Obsessive-compulsive disorder
     Dosage: 100 MILLIGRAM, ONCE A DAY
     Route: 065
  11. LAMOTRIGINE [Suspect]
     Active Substance: LAMOTRIGINE
     Indication: Obsessive-compulsive disorder
     Dosage: UNK
     Route: 065
  12. LORATADINE [Suspect]
     Active Substance: LORATADINE
     Indication: Mast cell activation syndrome
     Dosage: UNK
     Route: 065
  13. MINOCYCLINE [Suspect]
     Active Substance: MINOCYCLINE HYDROCHLORIDE
     Indication: Tick-borne fever
     Dosage: UNK
     Route: 065
  14. MONTELUKAST [Suspect]
     Active Substance: MONTELUKAST SODIUM
     Indication: Obsessive-compulsive disorder
     Dosage: UNK
     Route: 065
  15. RANITIDINE [Suspect]
     Active Substance: RANITIDINE
     Indication: Mast cell activation syndrome
     Dosage: UNK
     Route: 065
  16. COTRIMOXAZOLE [Suspect]
     Active Substance: SULFAMETHOXAZOLE\TRIMETHOPRIM
     Indication: Tick-borne fever
     Dosage: UNK
     Route: 065
  17. DOXYCYCLINE [Suspect]
     Active Substance: DOXYCYCLINE
     Indication: Tick-borne fever
     Dosage: 100 MILLIGRAM, TWO TIMES A DAY
     Route: 065
  18. HYDROXYCHLOROQUINE [Suspect]
     Active Substance: HYDROXYCHLOROQUINE
     Indication: Tick-borne fever
     Dosage: UNK
     Route: 065
  19. KETOTIFEN [Suspect]
     Active Substance: KETOTIFEN
     Indication: Obsessive-compulsive disorder
     Dosage: 2 MILLIGRAM, ONCE A DAY
     Route: 065
  20. LEVOCETIRIZINE [Suspect]
     Active Substance: LEVOCETIRIZINE
     Indication: Mast cell activation syndrome
     Dosage: UNK
     Route: 065
  21. LURASIDONE [Suspect]
     Active Substance: LURASIDONE
     Indication: Obsessive-compulsive disorder
     Dosage: UNK
     Route: 065
  22. NALTREXONE [Suspect]
     Active Substance: NALTREXONE
     Indication: Obsessive-compulsive disorder
     Dosage: 3 MILLIGRAM, ONCE A DAY
     Route: 065
  23. RIFAMPIN [Suspect]
     Active Substance: RIFAMPIN
     Indication: Tick-borne fever
     Dosage: UNK
     Route: 065
  24. VILAZODONE [Suspect]
     Active Substance: VILAZODONE
     Indication: Obsessive-compulsive disorder
     Dosage: UNK
     Route: 065

REACTIONS (5)
  - Cerebral disorder [Recovering/Resolving]
  - Condition aggravated [Recovering/Resolving]
  - Cognitive disorder [Recovering/Resolving]
  - Drug intolerance [Recovered/Resolved]
  - Drug ineffective [Unknown]
